FAERS Safety Report 8056628-3 (Version None)
Quarter: 2012Q1

REPORT INFORMATION
  Report Type: 
  Country: None (occurrence: None)
  Receive Date: 20120119
  Receipt Date: 20120111
  Transmission Date: 20120608
  Serious: Yes (Other)
  Sender: FDA-Public Use
  Company Number: CHPA2012US000549

PATIENT
  Sex: Male

DRUGS (18)
  1. CIPROFLOXACIN [Concomitant]
     Indication: STEROID THERAPY
     Dosage: 500 MG, UNK
  2. NITROGLYCERIN [Concomitant]
     Indication: ANGINA PECTORIS
     Dosage: 4 MG, PRN
  3. SULFAMETHOXAZOLE AND TRIMETHOPRIM [Concomitant]
     Indication: STEROID THERAPY
     Dosage: UNK, UNK
  4. COMBIVENT [Concomitant]
     Indication: EMPHYSEMA
     Dosage: UNK, BID
  5. ALDACTONE [Concomitant]
     Indication: PULMONARY OEDEMA
     Dosage: 25 MG, QD
  6. SPIRIVA [Concomitant]
     Indication: EMPHYSEMA
     Dosage: UNK, QD
  7. BUCKLEY'S CHEST CONGESTION [Suspect]
     Indication: EMPHYSEMA
     Dosage: 4 TSP, UP TO 3 TIMES PER DAY
     Route: 048
  8. DIOVAN [Concomitant]
     Indication: HYPERTENSION
     Dosage: 80 MG, QD
  9. PREDNISONE [Concomitant]
     Indication: STEROID THERAPY
     Dosage: 10 MG, QD
  10. SENNA [Concomitant]
     Indication: LAXATIVE SUPPORTIVE CARE
     Dosage: UNK, QD
  11. ACETAMINOPHEN [Concomitant]
     Indication: PAIN
     Dosage: UNK, UNK
  12. SINGULAIR [Concomitant]
     Indication: EMPHYSEMA
     Dosage: 10 MG, QD
  13. SYMBICORT [Concomitant]
     Indication: EMPHYSEMA
     Dosage: UNK, BID
  14. ERYTHROMYCIN [Concomitant]
     Indication: STEROID THERAPY
     Dosage: UNK, UNK
  15. LASIX [Concomitant]
     Indication: PULMONARY OEDEMA
     Dosage: 80 MG, QD
  16. ROBITUSSIN ^ROBINS^ [Concomitant]
     Indication: EMPHYSEMA
     Dosage: UNK DF, UNK
  17. CLOTRIMAZOLE [Concomitant]
     Indication: CANDIDIASIS
     Dosage: 10 MG, PRN
  18. AVELOX [Concomitant]
     Indication: STEROID THERAPY
     Dosage: 400 MG, UNK

REACTIONS (4)
  - THERAPEUTIC RESPONSE UNEXPECTED [None]
  - HERPES ZOSTER [None]
  - DRUG INEFFECTIVE FOR UNAPPROVED INDICATION [None]
  - INCORRECT DRUG ADMINISTRATION DURATION [None]
